FAERS Safety Report 4314442-6 (Version None)
Quarter: 2004Q1

REPORT INFORMATION
  Report Type: 
  Country: None (occurrence: None)
  Receive Date: 20040309
  Receipt Date: 20040227
  Transmission Date: 20041129
  Serious: Yes (Other)
  Sender: FDA-Public Use
  Company Number: AT-BRISTOL-MYERS SQUIBB COMPANY-12519351

PATIENT
  Age: 80 Year
  Sex: Female

DRUGS (15)
  1. CARBOPLATIN [Suspect]
     Indication: OVARIAN CANCER
     Route: 042
     Dates: start: 20031212, end: 20031212
  2. PACLITAXEL [Suspect]
     Indication: OVARIAN CANCER
     Route: 042
     Dates: start: 20031212, end: 20031212
  3. FORTECORTIN [Concomitant]
     Dates: start: 20031211
  4. DEXAMETHASONE [Concomitant]
     Dates: start: 20031212
  5. DIBONDRIN [Concomitant]
     Dates: start: 20031212
  6. ULSAL [Concomitant]
     Dates: start: 20031212
  7. NAVOBAN [Concomitant]
     Dates: start: 20031212
  8. ISOPTIN TAB [Concomitant]
     Dates: start: 20020101
  9. DEANXIT [Concomitant]
     Dates: start: 20000101
  10. COMBIVENT [Concomitant]
     Dates: start: 20031120
  11. PANTOLOC [Concomitant]
     Dates: start: 20031122, end: 20031218
  12. ANTIBIOPHILUS [Concomitant]
     Dates: start: 20031203, end: 20031217
  13. NEUROBION FORTE [Concomitant]
     Dates: start: 20031215
  14. TRAMADOL HCL [Concomitant]
  15. SAROTEN [Concomitant]
     Dates: start: 20031215

REACTIONS (2)
  - CLOSTRIDIUM COLITIS [None]
  - LEUKOPENIA [None]
